FAERS Safety Report 24985054 (Version 1)
Quarter: 2025Q1

REPORT INFORMATION
  Report Type: Spontaneous
  Country: US (occurrence: US)
  Receive Date: 20250219
  Receipt Date: 20250219
  Transmission Date: 20250409
  Serious: Yes (Hospitalization)
  Sender: LUPIN
  Company Number: US-MLMSERVICE-20250130-PI367198-00335-1

PATIENT
  Age: 22 Year
  Sex: Male

DRUGS (9)
  1. ZIPRASIDONE [Suspect]
     Active Substance: ZIPRASIDONE
     Indication: Psychotic disorder
     Dosage: 20 MILLIGRAM, TID
     Route: 065
     Dates: start: 2021
  2. ZIPRASIDONE [Suspect]
     Active Substance: ZIPRASIDONE
     Dosage: 20 MILLIGRAM, BID
     Route: 065
     Dates: start: 2021
  3. ZIPRASIDONE [Suspect]
     Active Substance: ZIPRASIDONE
     Route: 065
  4. NADOLOL [Concomitant]
     Active Substance: NADOLOL
     Indication: Product used for unknown indication
     Dosage: 40 MILLIGRAM, QD
     Route: 065
     Dates: start: 2021
  5. RIFAXIMIN [Concomitant]
     Active Substance: RIFAXIMIN
     Indication: Product used for unknown indication
     Dosage: 200 MILLIGRAM, BID
     Route: 065
     Dates: start: 2021
  6. LACTULOSE [Concomitant]
     Active Substance: LACTULOSE
     Indication: Product used for unknown indication
     Dosage: 45 MILLILITER, QID
     Route: 065
     Dates: start: 2021
  7. FOLIC ACID [Concomitant]
     Active Substance: FOLIC ACID
     Indication: Product used for unknown indication
     Dosage: 1 MILLIGRAM, QD
     Route: 065
     Dates: start: 2021
  8. THIAMINE [Concomitant]
     Active Substance: THIAMINE
     Indication: Product used for unknown indication
     Dosage: 1000 MILLIGRAM, QD
     Route: 065
     Dates: start: 2021
  9. VITAMINS [Concomitant]
     Active Substance: VITAMINS
     Indication: Product used for unknown indication
     Route: 065

REACTIONS (1)
  - Catatonia [Recovering/Resolving]

NARRATIVE: CASE EVENT DATE: 20210101
